FAERS Safety Report 22220343 (Version 2)
Quarter: 2024Q1

REPORT INFORMATION
  Report Type: Report from Study
  Country: US (occurrence: US)
  Receive Date: 20230417
  Receipt Date: 20240207
  Transmission Date: 20240410
  Serious: Yes (Hospitalization, Other)
  Sender: FDA-Public Use
  Company Number: US-BAUSCH-BL-2020-013454

PATIENT
  Age: 59 Year
  Sex: Male
  Weight: 95.34 kg

DRUGS (48)
  1. XIFAXAN [Suspect]
     Active Substance: RIFAXIMIN
     Indication: Hepatic encephalopathy
     Route: 048
     Dates: start: 2012
  2. XIFAXAN [Suspect]
     Active Substance: RIFAXIMIN
     Route: 048
  3. LACTULOSE [Suspect]
     Active Substance: LACTULOSE
     Indication: Hepatic encephalopathy
     Dosage: 10G/15ML
     Route: 048
  4. LACTULOSE [Suspect]
     Active Substance: LACTULOSE
     Dosage: 10G/15ML
     Route: 048
  5. TYLENOL-CODEINE 4 [Concomitant]
     Indication: Product used for unknown indication
     Dosage: 300-60 MG; EVERY 4 HOURS AS NEEDED
     Route: 048
  6. SPIRONOLACTONE [Concomitant]
     Active Substance: SPIRONOLACTONE
     Indication: Product used for unknown indication
     Route: 048
  7. VITAMIN D2 [Concomitant]
     Active Substance: ERGOCALCIFEROL
     Indication: Product used for unknown indication
     Dosage: 2000 UNIT
     Route: 048
  8. VITAMINS [Concomitant]
     Active Substance: VITAMINS
     Indication: Product used for unknown indication
     Route: 048
  9. BUMETANIDE [Concomitant]
     Active Substance: BUMETANIDE
     Indication: Peripheral swelling
     Dosage: AS NEEDED
     Route: 048
  10. AMOXICILLIN [Concomitant]
     Active Substance: AMOXICILLIN
     Indication: Product used for unknown indication
     Route: 048
  11. AMOXICILLIN [Concomitant]
     Active Substance: AMOXICILLIN
     Dosage: 875/175
  12. ANTIHISTAMINES NOS [Concomitant]
     Active Substance: ANTIHISTAMINES NOS
     Indication: Product used for unknown indication
     Dosage: QD
  13. NADOLOL [Concomitant]
     Active Substance: NADOLOL
     Indication: Product used for unknown indication
     Dosage: ONE-HALF TABLET DAILY
     Route: 048
  14. NOVOLOG [Concomitant]
     Active Substance: INSULIN ASPART
     Indication: Product used for unknown indication
     Dosage: FLEX PEN U-100 INSULIN 100 UNIT/ML (3ML); 18 U AM, 16 U PM AND 15 U BEDTIME
     Route: 058
  15. LEVEMIR [Concomitant]
     Active Substance: INSULIN DETEMIR
     Indication: Product used for unknown indication
     Dosage: FLEXPEN 100 UNIT/ML (3ML), INSULIN PEN?20-22 UNITS IN PM AND 4-5 UNITS IN PM
     Route: 058
  16. POTASSIUM [Concomitant]
     Active Substance: POTASSIUM
     Indication: Product used for unknown indication
  17. POTASSIUM [Concomitant]
     Active Substance: POTASSIUM
  18. ADEMPAS [Concomitant]
     Active Substance: RIOCIGUAT
     Indication: Product used for unknown indication
     Route: 048
  19. ADEMPAS [Concomitant]
     Active Substance: RIOCIGUAT
     Route: 048
  20. MACITENTAN [Concomitant]
     Active Substance: MACITENTAN
     Indication: Product used for unknown indication
     Route: 048
  21. PLENVU [Concomitant]
     Active Substance: ASCORBIC ACID\POLYETHYLENE GLYCOL 3350\POTASSIUM CHLORIDE\SODIUM ASCORBATE\SODIUM CHLORIDE\SODIUM SU
     Indication: Product used for unknown indication
     Dosage: 140-9-5.2 G, AS DIRECTED, SEQUENTIAL
     Route: 048
  22. SUPREP BOWEL PREP [Concomitant]
     Active Substance: MAGNESIUM SULFATE\POTASSIUM SULFATE\SODIUM SULFATE
     Indication: Product used for unknown indication
     Dosage: 17.5-3/13-1.6 G, RECONSTITUTED, USE KIT AS DIRECTED
     Route: 048
  23. OMEPRAZOLE [Concomitant]
     Active Substance: OMEPRAZOLE
     Indication: Product used for unknown indication
     Dosage: DELAYED RELEASE (ENTERIC COATED), BEFORE MEAL
     Route: 048
  24. LYRICA [Concomitant]
     Active Substance: PREGABALIN
     Indication: Product used for unknown indication
     Dosage: 1 CAPSULE AS NEEDED
     Route: 048
  25. LOVENOX [Concomitant]
     Active Substance: ENOXAPARIN SODIUM
     Indication: Portal vein thrombosis
     Dosage: 60 MG/0.6 ML (INJECT 0.3  ML (30 MG))
     Route: 058
     Dates: start: 202003, end: 202006
  26. SODIUM BICARBONATE [Concomitant]
     Active Substance: SODIUM BICARBONATE
     Indication: Product used for unknown indication
  27. SODIUM BICARBONATE [Concomitant]
     Active Substance: SODIUM BICARBONATE
  28. ZOLPIDEM [Concomitant]
     Active Substance: ZOLPIDEM TARTRATE
     Indication: Product used for unknown indication
  29. FLONASE ALLERGY RELIEF [Concomitant]
     Active Substance: FLUTICASONE PROPIONATE
     Indication: Product used for unknown indication
     Dosage: 50 MCG/ACTUATION INTRANASAL SPRAY
  30. MAGNESIUM CITRATE [Concomitant]
     Active Substance: MAGNESIUM CITRATE
     Indication: Product used for unknown indication
     Route: 048
  31. MAGNESIUM CITRATE [Concomitant]
     Active Substance: MAGNESIUM CITRATE
  32. ONDANSETRON [Concomitant]
     Active Substance: ONDANSETRON
     Indication: Nausea
     Dosage: DISINTEGRATING ( PLACE 1 TABLET (8 MG) ON TOP OF THE TOUNGE WHERE IT WOULD DISSOLVED)
     Route: 048
  33. POTASSIUM CHLORIDE [Concomitant]
     Active Substance: POTASSIUM CHLORIDE
     Indication: Product used for unknown indication
     Dosage: WITH FOOD
     Route: 048
  34. OPSUMIT [Concomitant]
     Active Substance: MACITENTAN
     Indication: Product used for unknown indication
  35. ZINC [Concomitant]
     Active Substance: PYRITHIONE ZINC\ZINC\ZINC CHLORIDE
     Indication: Product used for unknown indication
  36. VITAMIN D3 [Concomitant]
     Active Substance: CHOLECALCIFEROL
     Indication: Product used for unknown indication
  37. MINERALS\VITAMINS [Concomitant]
     Active Substance: MINERALS\VITAMINS
     Indication: Product used for unknown indication
  38. PREGABALIN [Concomitant]
     Active Substance: PREGABALIN
     Indication: Product used for unknown indication
  39. NORTRIPTYLINE [Concomitant]
     Active Substance: NORTRIPTYLINE
     Indication: Product used for unknown indication
  40. SEVELAMER CARBONATE [Concomitant]
     Active Substance: SEVELAMER CARBONATE
     Indication: Product used for unknown indication
  41. CALCIUM ACETATE [Concomitant]
     Active Substance: CALCIUM ACETATE
     Indication: Product used for unknown indication
  42. MIDODRINE [Concomitant]
     Active Substance: MIDODRINE
     Indication: Product used for unknown indication
  43. DOXYCYCLINE [Concomitant]
     Active Substance: DOXYCYCLINE
     Indication: Product used for unknown indication
  44. METHOCARBAMOL [Concomitant]
     Active Substance: METHOCARBAMOL
     Indication: Product used for unknown indication
  45. ADMELOG [Concomitant]
     Active Substance: INSULIN LISPRO
     Indication: Product used for unknown indication
     Dosage: 15-8 UNIT
  46. BENZONATATE [Concomitant]
     Active Substance: BENZONATATE
     Indication: Product used for unknown indication
  47. URSODIOL [Concomitant]
     Active Substance: URSODIOL
     Indication: Cholecystitis
     Route: 048
     Dates: end: 202212
  48. URSODIOL [Concomitant]
     Active Substance: URSODIOL
     Dosage: LOW DOSE RESTARTED
     Route: 048
     Dates: start: 20230122

REACTIONS (39)
  - Hepatic encephalopathy [Not Recovered/Not Resolved]
  - Disease recurrence [Not Recovered/Not Resolved]
  - Ammonia increased [Unknown]
  - Hospitalisation [Unknown]
  - Cholecystitis [Unknown]
  - Cholelithiasis [Unknown]
  - Portal hypertensive gastropathy [Unknown]
  - Pulmonary hypertension [Unknown]
  - Chronic kidney disease [Unknown]
  - Non-cirrhotic portal hypertension [Unknown]
  - Congestive hepatopathy [Unknown]
  - End stage renal disease [Unknown]
  - Gastrointestinal vascular malformation haemorrhagic [Unknown]
  - Ascites [Unknown]
  - Therapy interrupted [Unknown]
  - Varices oesophageal [Unknown]
  - Fall [Unknown]
  - Splenomegaly [Unknown]
  - Cardiomegaly [Unknown]
  - Rib fracture [Unknown]
  - Bradycardia [Unknown]
  - Weight fluctuation [Unknown]
  - Amnesia [Unknown]
  - Contusion [Unknown]
  - Polydipsia [Unknown]
  - Seasonal allergy [Unknown]
  - Restless legs syndrome [Unknown]
  - Drug intolerance [Unknown]
  - Generalised oedema [Unknown]
  - Anorectal varices [Unknown]
  - Rhinorrhoea [Unknown]
  - Nasal congestion [Unknown]
  - Insomnia [Unknown]
  - Pruritus [Unknown]
  - Diarrhoea [Unknown]
  - Nausea [Unknown]
  - Fatigue [Unknown]
  - Inability to afford medication [Unknown]
  - Intentional product misuse [Unknown]

NARRATIVE: CASE EVENT DATE: 20180101
